FAERS Safety Report 23734706 (Version 1)
Quarter: 2024Q2

REPORT INFORMATION
  Report Type: Spontaneous
  Country: FR (occurrence: FR)
  Receive Date: 20240412
  Receipt Date: 20240412
  Transmission Date: 20240715
  Serious: Yes (Other)
  Sender: FDA-Public Use
  Company Number: None

PATIENT
  Age: 13 Year
  Sex: Male

DRUGS (29)
  1. MERCAPTOPURINE [Suspect]
     Active Substance: MERCAPTOPURINE
     Indication: Acute lymphocytic leukaemia
     Dosage: 40 MG,QD
     Route: 048
     Dates: start: 20170113
  2. ADRIAMYCIN [Suspect]
     Active Substance: DOXORUBICIN HYDROCHLORIDE
     Indication: Acute lymphocytic leukaemia
     Dosage: 42.000MG
     Route: 042
     Dates: start: 20170530
  3. CYCLOPHOSPHAMIDE [Suspect]
     Active Substance: CYCLOPHOSPHAMIDE
     Indication: Acute lymphocytic leukaemia
     Dosage: 1500 MG,UNK1980 MG,QDTOTAL DOSE: 1640
     Route: 042
     Dates: start: 20170113, end: 20170209
  4. CYCLOPHOSPHAMIDE [Suspect]
     Active Substance: CYCLOPHOSPHAMIDE
     Dosage: 1640 MG,QDTOTAL DOSE: 1640
     Route: 042
     Dates: start: 20170621, end: 20170627
  5. CYTARABINE [Suspect]
     Active Substance: CYTARABINE
     Dosage: 110 MG,QDTOTAL DOSE: 1680
     Route: 042
     Dates: start: 20170629, end: 20170713
  6. CYTARABINE [Suspect]
     Active Substance: CYTARABINE
     Indication: Acute lymphocytic leukaemia
     Dosage: 110 MG,UNK
     Route: 042
     Dates: start: 20161202
  7. CYTARABINE [Suspect]
     Active Substance: CYTARABINE
     Dosage: 110 MG,UNK
     Route: 042
     Dates: start: 20170115
  8. CYTARABINE [Suspect]
     Active Substance: CYTARABINE
     Dosage: 120 MG,UNKTOTAL DOSE: 1680
     Route: 042
  9. CYTARABINE [Suspect]
     Active Substance: CYTARABINE
     Dosage: 30 MG,QDTOTAL DOSE: 1680
     Route: 037
     Dates: start: 20170602, end: 20170602
  10. CYTARABINE [Suspect]
     Active Substance: CYTARABINE
     Dosage: 30 MG,UNK
     Route: 037
     Dates: start: 20161202
  11. DAUNORUBICIN [Suspect]
     Active Substance: DAUNORUBICIN
     Dosage: 65 MG,QD
     Route: 042
     Dates: start: 20161130, end: 20161222
  12. DAUNORUBICIN [Suspect]
     Active Substance: DAUNORUBICIN
     Indication: Acute lymphocytic leukaemia
     Dosage: 65.000MG QD
     Route: 042
     Dates: start: 20170530
  13. DEXAMETHASONE SODIUM METASULFOBENZOATE [Suspect]
     Active Substance: DEXAMETHASONE SODIUM METASULFOBENZOATE
     Indication: Acute lymphocytic leukaemia
     Dosage: 16.5 MG,UNK
     Route: 048
     Dates: start: 20170530, end: 20170613
  14. DEXAMETHASONE SODIUM METASULFOBENZOATE [Suspect]
     Active Substance: DEXAMETHASONE SODIUM METASULFOBENZOATE
     Dosage: 96 MG,UNK
     Route: 048
     Dates: start: 20170317, end: 20170322
  15. DOXORUBICIN [Suspect]
     Active Substance: DOXORUBICIN
     Indication: Acute lymphocytic leukaemia
     Dosage: 42 MG,UNK
     Route: 042
     Dates: start: 20170530, end: 20170613
  16. HYDROCORTISONE [Suspect]
     Active Substance: HYDROCORTISONE
     Indication: Acute lymphocytic leukaemia
     Dosage: 15 MG,UNK
     Route: 037
     Dates: start: 20161202
  17. METHOTREXATE [Suspect]
     Active Substance: METHOTREXATE
     Dosage: 15 MG,QD
     Route: 037
     Dates: start: 20161129
  18. METHOTREXATE [Suspect]
     Active Substance: METHOTREXATE
     Dosage: 15.000MG
     Route: 037
     Dates: start: 20170602, end: 20170629
  19. METHOTREXATE [Suspect]
     Active Substance: METHOTREXATE
     Indication: Acute lymphocytic leukaemia
     Dosage: 8000 MG,QD
     Route: 042
     Dates: start: 20170417
  20. PEGASPARGASE [Suspect]
     Active Substance: PEGASPARGASE
     Indication: Acute lymphocytic leukaemia
     Dosage: 4200 IU,UNK
     Route: 042
     Dates: start: 20161205
  21. PEGASPARGASE [Suspect]
     Active Substance: PEGASPARGASE
     Dosage: 4200 IU,UNK
     Route: 042
     Dates: start: 20170602, end: 20170715
  22. PREDNISOLONE [Suspect]
     Active Substance: PREDNISOLONE
     Dosage: 15.000MG QD
     Route: 037
     Dates: start: 20161202
  23. PREDNISOLONE [Suspect]
     Active Substance: PREDNISOLONE
     Indication: Acute lymphocytic leukaemia
     Route: 037
     Dates: start: 20170602, end: 20170602
  24. PREDNISOLONE ACETATE [Suspect]
     Active Substance: PREDNISOLONE ACETATE
     Indication: Acute lymphocytic leukaemia
     Dosage: QD
     Route: 037
     Dates: start: 20170602, end: 20170602
  25. PREDNISONE [Suspect]
     Active Substance: PREDNISONE
     Indication: Acute lymphocytic leukaemia
     Dosage: 100 MG,QDTOTAL DOSE: 3000
     Route: 048
     Dates: start: 20161129, end: 20161228
  26. THIOGUANINE [Suspect]
     Active Substance: THIOGUANINE
     Indication: Acute lymphocytic leukaemia
     Route: 048
     Dates: start: 20170710, end: 20170714
  27. THIOGUANINE [Suspect]
     Active Substance: THIOGUANINE
     Route: 048
     Dates: start: 20170627, end: 20170707
  28. VINCRISTINE SULFATE [Suspect]
     Active Substance: VINCRISTINE SULFATE
     Indication: Acute lymphocytic leukaemia
     Dosage: 2 MG,QDTOTAL DOSE: 470
     Route: 042
     Dates: start: 20161130, end: 20170722
  29. ETOPOSIDE [Suspect]
     Active Substance: ETOPOSIDE
     Indication: Acute lymphocytic leukaemia
     Dosage: 240 MG,QDTOTAL DOSE: 720
     Route: 042
     Dates: start: 20170319, end: 20170321

REACTIONS (3)
  - Hypertriglyceridaemia [Recovered/Resolved]
  - Hypertriglyceridaemia [Recovered/Resolved]
  - Off label use [Unknown]

NARRATIVE: CASE EVENT DATE: 20170620
